FAERS Safety Report 6397382-0 (Version None)
Quarter: 2009Q4

REPORT INFORMATION
  Report Type: 
  Country: None (occurrence: None)
  Receive Date: 20091012
  Receipt Date: 20090929
  Transmission Date: 20100525
  Serious: Yes (Other)
  Sender: FDA-Public Use
  Company Number: PHEH2008US02320

PATIENT
  Sex: Female

DRUGS (15)
  1. ZOMETA [Suspect]
     Dosage: UNK
     Dates: end: 20041201
  2. METHADONE HYDROCHLORIDE [Concomitant]
  3. ROCEPHIN [Concomitant]
  4. PROZAC [Concomitant]
  5. PROCRIT                            /00909301/ [Concomitant]
  6. MEDROL [Concomitant]
  7. DYAZIDE [Concomitant]
  8. TAMOXIFEN CITRATE [Concomitant]
  9. GABITRIL [Concomitant]
  10. OXYCONTIN [Concomitant]
  11. FOLIC ACID [Concomitant]
  12. PREDNISONE [Concomitant]
  13. DURAGESIC-100 [Concomitant]
  14. HYDROMORPHONE [Concomitant]
  15. NEXIUM [Concomitant]

REACTIONS (29)
  - ANAEMIA [None]
  - ARTERIAL BYPASS OPERATION [None]
  - ARTERIOSCLEROSIS [None]
  - BONE DISORDER [None]
  - BONE FISTULA [None]
  - CELLULITIS [None]
  - DEBRIDEMENT [None]
  - DEPRESSION [None]
  - ESCHERICHIA INFECTION [None]
  - EYE DISORDER [None]
  - GENERAL PHYSICAL CONDITION ABNORMAL [None]
  - HAEMATOMA [None]
  - IMPAIRED HEALING [None]
  - INFECTION [None]
  - INTERMITTENT CLAUDICATION [None]
  - MENINGIOMA [None]
  - METASTASES TO LUNG [None]
  - METASTATIC NEOPLASM [None]
  - MUSCULAR WEAKNESS [None]
  - MYALGIA [None]
  - NEUROPATHY PERIPHERAL [None]
  - OSTEOMYELITIS [None]
  - OSTEONECROSIS [None]
  - PAIN [None]
  - PNEUMONIA [None]
  - SWELLING [None]
  - TOOTH EXTRACTION [None]
  - WEIGHT DECREASED [None]
  - WOUND DECOMPOSITION [None]
